FAERS Safety Report 22198435 (Version 1)
Quarter: 2023Q2

REPORT INFORMATION
  Report Type: Spontaneous
  Country: US (occurrence: None)
  Receive Date: 20230411
  Receipt Date: 20230411
  Transmission Date: 20230721
  Serious: Yes (Hospitalization)
  Sender: FDA-Public Use
  Company Number: None

PATIENT
  Age: 79 Year
  Sex: Male
  Weight: 53.07 kg

DRUGS (7)
  1. MEKINIST [Suspect]
     Active Substance: TRAMETINIB DIMETHYL SULFOXIDE
     Indication: Lung carcinoma cell type unspecified stage 0
     Dosage: FREQUENCY : DAILY;?
     Route: 048
  2. TAFINLAR [Suspect]
     Active Substance: DABRAFENIB MESYLATE
     Indication: Lung carcinoma cell type unspecified stage 0
     Dosage: FREQUENCY : TWICE A DAY;?
     Route: 048
     Dates: start: 20230331
  3. ASPIRIN [Concomitant]
     Active Substance: ASPIRIN
  4. BREO ELLIPTA [Concomitant]
     Active Substance: FLUTICASONE FUROATE\VILANTEROL TRIFENATATE
  5. VITAMINS [Concomitant]
     Active Substance: VITAMINS
  6. FINASTERIDE [Concomitant]
     Active Substance: FINASTERIDE
  7. COLCHICINE [Concomitant]
     Active Substance: COLCHICINE

REACTIONS (1)
  - Pneumonia [None]
